FAERS Safety Report 23568304 (Version 1)
Quarter: 2024Q1

REPORT INFORMATION
  Report Type: Spontaneous
  Country: US (occurrence: US)
  Receive Date: 20240227
  Receipt Date: 20240227
  Transmission Date: 20240409
  Serious: Yes (Other)
  Sender: FDA-Public Use
  Company Number: US-AMGEN-USASP2024035191

PATIENT
  Age: 52 Year
  Sex: Male

DRUGS (8)
  1. APREMILAST [Suspect]
     Active Substance: APREMILAST
     Indication: Pityriasis rubra pilaris
     Dosage: UNK
     Route: 065
  2. APREMILAST [Suspect]
     Active Substance: APREMILAST
     Indication: Off label use
  3. ADALIMUMAB [Suspect]
     Active Substance: ADALIMUMAB\ISOPROPYL ALCOHOL
     Indication: Pityriasis rubra pilaris
     Dosage: UNK
     Route: 065
  4. ADALIMUMAB [Suspect]
     Active Substance: ADALIMUMAB\ISOPROPYL ALCOHOL
     Indication: Off label use
  5. ACITRETIN [Concomitant]
     Active Substance: ACITRETIN
     Dosage: UNK
  6. METHOTREXATE [Concomitant]
     Active Substance: METHOTREXATE
     Dosage: UNK
  7. CYCLOSPORINE [Concomitant]
     Active Substance: CYCLOSPORINE
     Dosage: UNK
  8. USTEKINUMAB [Concomitant]
     Active Substance: USTEKINUMAB
     Dosage: UNK

REACTIONS (4)
  - Cutaneous T-cell lymphoma [Recovering/Resolving]
  - Therapy partial responder [Unknown]
  - Therapeutic product effect variable [Unknown]
  - Off label use [Unknown]
